FAERS Safety Report 18204163 (Version 2)
Quarter: 2020Q3

REPORT INFORMATION
  Report Type: Report from Study
  Country: US (occurrence: US)
  Receive Date: 20200827
  Receipt Date: 20200908
  Transmission Date: 20201103
  Serious: Yes (Hospitalization, Other)
  Sender: FDA-Public Use
  Company Number: US-BRISTOL-MYERS SQUIBB COMPANY-BMS-2020-058563

PATIENT
  Age: 70 Year
  Sex: Male
  Weight: 81.9 kg

DRUGS (6)
  1. NIVOLUMAB [Suspect]
     Active Substance: NIVOLUMAB
     Indication: CHRONIC MYELOID LEUKAEMIA RECURRENT
     Dosage: UNK
     Route: 065
     Dates: start: 20200516, end: 20200713
  2. PACERONE [Concomitant]
     Active Substance: AMIODARONE HYDROCHLORIDE
     Indication: PRODUCT USED FOR UNKNOWN INDICATION
     Dosage: 100 MILLIGRAM, QD
     Route: 048
  3. LIPITOR [Concomitant]
     Active Substance: ATORVASTATIN CALCIUM
     Indication: MYOCARDIAL INFARCTION
     Dosage: 40 MG , ONE TABLET AT BED TIME
     Route: 048
  4. VANTIN [CEFPODOXIME PROXETIL] [Concomitant]
     Indication: PRODUCT USED FOR UNKNOWN INDICATION
     Dosage: 200 MILLIGRAM, BID (FOR 20 DAYS)
     Route: 048
  5. IMODIUM [Concomitant]
     Active Substance: LOPERAMIDE HYDROCHLORIDE
     Indication: DIARRHOEA
     Dosage: CAPSULE (2 MG) BY MOUTH EVERY 4 (FOUR) HOURS AS NEEDED
     Route: 048
  6. IPILIMUMAB [Suspect]
     Active Substance: IPILIMUMAB
     Indication: CHRONIC MYELOID LEUKAEMIA RECURRENT
     Route: 065

REACTIONS (4)
  - Oedema peripheral [Recovered/Resolved]
  - Pneumonia fungal [Unknown]
  - COVID-19 pneumonia [Unknown]
  - Large intestine infection [Unknown]

NARRATIVE: CASE EVENT DATE: 20200716
